FAERS Safety Report 6698322-7 (Version None)
Quarter: 2010Q2

REPORT INFORMATION
  Report Type: 
  Country: None (occurrence: None)
  Receive Date: 20100427
  Receipt Date: 20100419
  Transmission Date: 20101027
  Serious: Yes (Other)
  Sender: FDA-Public Use
  Company Number: US-PERRIGO-10US008920

PATIENT
  Sex: Female
  Weight: 117.91 kg

DRUGS (13)
  1. CHLORPHENIRAMINE MALEATE [Suspect]
     Indication: SEASONAL ALLERGY
     Dosage: 4 MG, QD @ HS
     Route: 048
     Dates: start: 20090819
  2. CHLORPHENIRAMINE MALEATE [Suspect]
     Indication: SLEEP DISORDER
  3. AZELASTINE HCL [Suspect]
     Indication: DRUG USE FOR UNKNOWN INDICATION
     Dosage: UNK, QD
     Route: 045
     Dates: start: 20091225
  4. METFORMIN [Concomitant]
     Indication: DIABETES MELLITUS
     Dosage: 500 MG, BID
     Route: 048
  5. GLUCOSAMINE [Concomitant]
     Indication: ARTHRALGIA
     Dosage: 2000 MG, BID
     Route: 048
  6. LASIX [Concomitant]
     Indication: CARDIOMEGALY
     Dosage: 20 MG, QD
     Route: 048
  7. NOVOLOG [Concomitant]
     Indication: DIABETES MELLITUS
     Dosage: 27/25 UNITS, QD
     Route: 059
  8. COZAAR [Concomitant]
     Indication: BLOOD PRESSURE
     Dosage: 50 MG, QD
     Route: 048
  9. ENABLEX [Concomitant]
     Indication: BLADDER DISORDER
     Dosage: 7.5 MG, BID
     Route: 048
  10. PREVACID [Concomitant]
     Indication: GASTROOESOPHAGEAL REFLUX DISEASE
     Dosage: 15 MG, BID
     Route: 048
  11. KEFLEX [Concomitant]
     Indication: BLADDER DISORDER
     Dosage: 500 MG, BID
     Route: 048
  12. TYLENOL-500 [Concomitant]
     Indication: PAIN
     Dosage: 1 TABLET QD
     Route: 048
  13. MELATONIN [Concomitant]
     Indication: DRUG USE FOR UNKNOWN INDICATION
     Dosage: 25 MG, PRN
     Route: 048

REACTIONS (8)
  - BLINDNESS [None]
  - BLOOD GLUCOSE DECREASED [None]
  - CONVULSION [None]
  - HEART RATE INCREASED [None]
  - MYALGIA [None]
  - NAUSEA [None]
  - SWOLLEN TONGUE [None]
  - TREMOR [None]
